FAERS Safety Report 18168677 (Version 2)
Quarter: 2021Q1

REPORT INFORMATION
  Report Type: Spontaneous
  Country: US (occurrence: US)
  Receive Date: 20200818
  Receipt Date: 20210226
  Transmission Date: 20210419
  Serious: Yes (Hospitalization)
  Sender: FDA-Public Use
  Company Number: US-TEVA-2020-US-1816685

PATIENT
  Age: 68 Year
  Sex: Male
  Weight: 83 kg

DRUGS (23)
  1. IDARUBICIN [Suspect]
     Active Substance: IDARUBICIN
     Indication: ACUTE MYELOID LEUKAEMIA
     Route: 065
  2. RAPAMUNE [Concomitant]
     Active Substance: SIROLIMUS
     Dosage: TABLET 1 MILLIGRAM
     Route: 065
     Dates: start: 20200707
  3. NARCAN [Concomitant]
     Active Substance: NALOXONE HYDROCHLORIDE
     Route: 065
     Dates: start: 20200704
  4. BACTRIM DS [Concomitant]
     Active Substance: SULFAMETHOXAZOLE\TRIMETHOPRIM
     Route: 065
     Dates: start: 20200615
  5. DAUNORUBICIN [Suspect]
     Active Substance: DAUNORUBICIN
     Indication: ACUTE MYELOID LEUKAEMIA
     Dosage: 90 MILLIGRAM DAILY;
     Route: 042
     Dates: start: 20191212, end: 20191214
  6. ASP2215 [Suspect]
     Active Substance: GILTERITINIB
     Indication: ACUTE MYELOID LEUKAEMIA
     Dosage: 80 MILLIGRAM DAILY;
     Route: 048
     Dates: start: 20191219, end: 20200714
  7. CELLCEPT [Concomitant]
     Active Substance: MYCOPHENOLATE MOFETIL\MYCOPHENOLATE MOFETIL HYDROCHLORIDE
     Route: 065
  8. ROXICODONE [Concomitant]
     Active Substance: OXYCODONE HYDROCHLORIDE
     Dosage: TABLET 5 MILLIGRAM
     Route: 065
     Dates: start: 20200705
  9. COMPAZINE [Concomitant]
     Active Substance: PROCHLORPERAZINE MALEATE
     Dosage: TABLET 10 MILLIGRAM
     Route: 065
     Dates: start: 20200615
  10. VALTREX [Concomitant]
     Active Substance: VALACYCLOVIR HYDROCHLORIDE
     Dosage: TABLET 500 MILLIGRAM
     Route: 065
     Dates: start: 20200615
  11. MYCOLOG?II [Concomitant]
     Active Substance: NYSTATIN\TRIAMCINOLONE ACETONIDE
     Route: 065
     Dates: start: 20200626
  12. PSYLLIUM [Concomitant]
     Active Substance: PLANTAGO SEED
     Route: 065
  13. AVELOX [Concomitant]
     Active Substance: MOXIFLOXACIN HYDROCHLORIDE
     Dosage: TABLET 400 MILLIGRAM
     Route: 065
     Dates: start: 20200615
  14. CELLCEPT [Concomitant]
     Active Substance: MYCOPHENOLATE MOFETIL\MYCOPHENOLATE MOFETIL HYDROCHLORIDE
     Dosage: TABLET; 500 MILLIGRAM
     Route: 065
     Dates: start: 20200615
  15. MYCOSTATIN [Concomitant]
     Active Substance: NYSTATIN
     Route: 065
     Dates: start: 20200625
  16. CYTARABINE. [Suspect]
     Active Substance: CYTARABINE
     Indication: ACUTE MYELOID LEUKAEMIA
     Route: 042
     Dates: start: 20191212, end: 20191219
  17. ZOFRAN [Concomitant]
     Active Substance: ONDANSETRON HYDROCHLORIDE
     Dosage: TABLET 8 MILLIGRAM
     Route: 065
     Dates: start: 20200615
  18. ATIVAN [Concomitant]
     Active Substance: LORAZEPAM
     Dosage: TABLET 0.5 MILLIGRAM
     Route: 065
     Dates: start: 20200619
  19. SENOKOT [Concomitant]
     Active Substance: SENNOSIDES
     Dosage: TABLET 8.6 MILLIGRAM
     Route: 065
     Dates: start: 20200707
  20. COMPAZINE [Concomitant]
     Active Substance: PROCHLORPERAZINE MALEATE
     Route: 065
  21. MYCOSTATIN [Concomitant]
     Active Substance: NYSTATIN
     Route: 065
     Dates: start: 20200707
  22. COLACE [Concomitant]
     Active Substance: DOCUSATE SODIUM
     Dosage: CAPSULES 100 MILLIGRAM
     Route: 065
  23. NOXAFIL [Concomitant]
     Active Substance: POSACONAZOLE
     Dosage: PROLONGED RELASE TABLET 100 MG
     Route: 065
     Dates: start: 20200615

REACTIONS (2)
  - Alpha haemolytic streptococcal infection [Recovered/Resolved]
  - Febrile neutropenia [Recovered/Resolved]

NARRATIVE: CASE EVENT DATE: 20200707
